FAERS Safety Report 5095317-4 (Version None)
Quarter: 2006Q3

REPORT INFORMATION
  Report Type: 
  Country: None (occurrence: None)
  Receive Date: 20060830
  Receipt Date: 20060816
  Transmission Date: 20061208
  Serious: Yes (Death, Hospitalization)
  Sender: FDA-Public Use
  Company Number: US-2006-023488

PATIENT
  Age: 56 Year
  Sex: Male

DRUGS (1)
  1. BETASERON [Suspect]
     Indication: RELAPSING-REMITTING MULTIPLE SCLEROSIS
     Dosage: 8 MIU, EVERY 2D, SUBCUTANEOUS
     Route: 058
     Dates: start: 19990226, end: 20060810

REACTIONS (4)
  - GASTRIC HAEMORRHAGE [None]
  - PNEUMONIA [None]
  - TACHYCARDIA [None]
  - THROMBOSIS [None]
